FAERS Safety Report 20059175 (Version 6)
Quarter: 2023Q1

REPORT INFORMATION
  Report Type: Report from Study
  Country: CN (occurrence: CN)
  Receive Date: 20211111
  Receipt Date: 20230113
  Transmission Date: 20230418
  Serious: Yes (Death)
  Sender: FDA-Public Use
  Company Number: CN-BoehringerIngelheim-2021-BI-133165

PATIENT
  Age: 81 Year
  Sex: Female
  Weight: 48 kg

DRUGS (18)
  1. ALTEPLASE [Suspect]
     Active Substance: ALTEPLASE
     Indication: Ischaemic stroke
     Route: 042
     Dates: start: 20211016, end: 20211016
  2. BISOPROLOL [Concomitant]
     Active Substance: BISOPROLOL
     Indication: Hypertension
     Route: 048
     Dates: start: 20210726, end: 20211017
  3. NIFEDIPINE [Concomitant]
     Active Substance: NIFEDIPINE
     Indication: Hypertension
     Dosage: 1
     Route: 048
     Dates: start: 20100713, end: 20211017
  4. PIRACETAM [Concomitant]
     Active Substance: PIRACETAM
     Indication: Cerebral infarction
     Route: 042
     Dates: start: 20211015, end: 20211017
  5. COMPOUND VITAMIN [Concomitant]
     Indication: Prophylaxis
     Route: 042
     Dates: start: 20211015, end: 20211017
  6. ATORVASTATIN CALCIUM [Concomitant]
     Active Substance: ATORVASTATIN CALCIUM
     Indication: Cerebral infarction
     Route: 048
     Dates: start: 20211015, end: 20211017
  7. XYLITOL [Concomitant]
     Active Substance: XYLITOL
     Indication: Prophylaxis
     Route: 042
     Dates: start: 20211016, end: 20211017
  8. POTASSIUM CHLORIDE [Concomitant]
     Active Substance: POTASSIUM CHLORIDE
     Indication: Prophylaxis
     Route: 042
     Dates: start: 20211015, end: 20211017
  9. ALANYL GLUTAMINE [Concomitant]
     Active Substance: ALANYL GLUTAMINE
     Indication: Prophylaxis
     Route: 042
     Dates: start: 20211015, end: 20211017
  10. BUTYLPHTHALIDE [Concomitant]
     Active Substance: BUTYLPHTHALIDE
     Indication: Cerebral infarction
     Route: 042
     Dates: start: 20211015, end: 20211017
  11. TORSEMIDE [Concomitant]
     Active Substance: TORSEMIDE
     Indication: Brain oedema
     Route: 042
     Dates: start: 20211016, end: 20211017
  12. ESOMEPRAZOLE SODIUM [Concomitant]
     Active Substance: ESOMEPRAZOLE SODIUM
     Indication: Gastrointestinal haemorrhage
     Route: 042
     Dates: start: 20211016, end: 20211017
  13. CIMETIDINE [Concomitant]
     Active Substance: CIMETIDINE
     Indication: Prophylaxis
     Route: 042
     Dates: start: 20211016, end: 20211016
  14. ETIMICIN SULFATE [Concomitant]
     Active Substance: ETIMICIN SULFATE
     Indication: Pyrexia
     Route: 042
     Dates: start: 20211016, end: 20211016
  15. DESLANOSIDE [Concomitant]
     Active Substance: DESLANOSIDE
     Indication: Atrial fibrillation
     Route: 042
     Dates: start: 20211016, end: 20211016
  16. SODIUM NITROPRUSSIDE [Concomitant]
     Active Substance: SODIUM NITROPRUSSIDE
     Indication: Hypertension
     Route: 042
     Dates: start: 20211016, end: 20211016
  17. NITROGLYCERIN [Concomitant]
     Active Substance: NITROGLYCERIN
     Indication: Coronary artery disease
     Route: 042
     Dates: start: 20211016, end: 20211016
  18. ALBUMIN HUMAN [Concomitant]
     Active Substance: ALBUMIN HUMAN
     Indication: Encephalomalacia
     Route: 042
     Dates: start: 20211016, end: 20211016

REACTIONS (3)
  - Haemorrhagic cerebral infarction [Fatal]
  - Respiratory failure [Fatal]
  - Cardiac failure [Fatal]

NARRATIVE: CASE EVENT DATE: 20211016
